FAERS Safety Report 14289295 (Version 1)
Quarter: 2017Q4

REPORT INFORMATION
  Report Type: Spontaneous
  Country: US (occurrence: US)
  Receive Date: 20171214
  Receipt Date: 20171214
  Transmission Date: 20180321
  Serious: Yes (Hospitalization)
  Sender: FDA-Public Use
  Company Number: None

PATIENT
  Age: 41 Year
  Sex: Female
  Weight: 47.6 kg

DRUGS (1)
  1. PEMBROLIZUMAB. [Suspect]
     Active Substance: PEMBROLIZUMAB
     Indication: BREAST CANCER METASTATIC
     Dosage: ?          OTHER FREQUENCY:Q3 WEEKS;?
     Route: 041
     Dates: start: 20171127, end: 20171127

REACTIONS (11)
  - Urinary incontinence [None]
  - Dyskinesia [None]
  - Lymphadenopathy [None]
  - Condition aggravated [None]
  - Musculoskeletal pain [None]
  - Diarrhoea [None]
  - Neck pain [None]
  - Pain [None]
  - Muscular weakness [None]
  - Back pain [None]
  - Anal incontinence [None]

NARRATIVE: CASE EVENT DATE: 20171212
